FAERS Safety Report 5269115-2 (Version None)
Quarter: 2007Q1

REPORT INFORMATION
  Report Type: 
  Country: None (occurrence: None)
  Receive Date: 20070319
  Receipt Date: 20070223
  Transmission Date: 20070707
  Serious: Yes (Life-Threatening)
  Sender: FDA-Public Use
  Company Number: PHBS2007BR03473

PATIENT
  Sex: Male
  Weight: 74 kg

DRUGS (1)
  1. ELIDEL [Suspect]
     Indication: FUNGAL SKIN INFECTION
     Dosage: ONCE A DAY
     Route: 061
     Dates: start: 20070222

REACTIONS (5)
  - AXILLARY PAIN [None]
  - EYE PAIN [None]
  - PRURITUS [None]
  - RASH MACULAR [None]
  - SKIN BURNING SENSATION [None]
